FAERS Safety Report 10944916 (Version 1)
Quarter: 2015Q1

REPORT INFORMATION
  Report Type: Spontaneous
  Country: US (occurrence: None)
  Receive Date: 20150319
  Receipt Date: 20150319
  Transmission Date: 20150721
  Serious: Yes (Hospitalization)
  Sender: FDA-Public Use
  Company Number: 2785175

PATIENT
  Age: 76 Year
  Sex: Female

DRUGS (3)
  1. BEVACIZUMAB [Suspect]
     Active Substance: BEVACIZUMAB
     Indication: ADENOCARCINOMA OF COLON
     Dosage: INTRAVENOUS (NOT OTHERWISE SPECIFIED)
     Route: 042
  2. CAPECITABINE. [Concomitant]
     Active Substance: CAPECITABINE
  3. OXALIPLATIN. [Suspect]
     Active Substance: OXALIPLATIN
     Indication: ADENOCARCINOMA OF COLON
     Dosage: INTRAVENOUS (NOT OTHERWISE SPECIFIED)
     Route: 042

REACTIONS (6)
  - Leukocytosis [None]
  - Disseminated intravascular coagulation [None]
  - Bandaemia [None]
  - Acute kidney injury [None]
  - Autoimmune haemolytic anaemia [None]
  - Coagulopathy [None]
